FAERS Safety Report 9360211 (Version 1)
Quarter: 2013Q2

REPORT INFORMATION
  Report Type: Spontaneous
  Country: US (occurrence: US)
  Receive Date: 20130621
  Receipt Date: 20130621
  Transmission Date: 20140414
  Serious: No
  Sender: FDA-Public Use
  Company Number: US-US-EMD SERONO, INC.-7025650

PATIENT
  Age: 47 Year
  Sex: Female

DRUGS (1)
  1. REBIF [Suspect]
     Indication: MULTIPLE SCLEROSIS
     Route: 058
     Dates: start: 20100301

REACTIONS (7)
  - Ingrowing nail [Unknown]
  - Dyspnoea [Unknown]
  - Chest discomfort [Unknown]
  - Pallor [Unknown]
  - Multiple sclerosis [Unknown]
  - Rash [Unknown]
  - Injection site bruising [Unknown]
